FAERS Safety Report 7626136-X (Version None)
Quarter: 2011Q3

REPORT INFORMATION
  Report Type: 
  Country: None (occurrence: None)
  Receive Date: 20110721
  Receipt Date: 20110711
  Transmission Date: 20111222
  Serious: Yes (Hospitalization, Disabling, Other)
  Sender: FDA-Public Use
  Company Number: AU-MPIJNJ-2011-02955

PATIENT

DRUGS (10)
  1. INSULIN LISPRO [Concomitant]
     Indication: DIABETES MELLITUS
     Route: 065
  2. WARFARIN SODIUM [Concomitant]
     Indication: PULMONARY EMBOLISM
     Dosage: 6 MG, UNK
     Route: 065
  3. VELCADE [Suspect]
     Dosage: UNK MG, UNK
     Route: 042
     Dates: start: 20110501
  4. VALTREX [Concomitant]
     Route: 065
  5. SERETIDE                           /01420901/ [Concomitant]
     Route: 065
  6. VENTOLIN [Concomitant]
     Route: 065
  7. BACTRIM [Concomitant]
     Route: 065
  8. PANADOL OSTEO [Concomitant]
     Route: 065
  9. VELCADE [Suspect]
     Indication: MULTIPLE MYELOMA
     Dosage: UNK
     Route: 042
     Dates: start: 20100301, end: 20100801
  10. METFORMIN HCL [Concomitant]
     Indication: DIABETES MELLITUS
     Dosage: 500 MG, UNK
     Route: 048

REACTIONS (3)
  - PULMONARY FIBROSIS [None]
  - RESPIRATORY DISTRESS [None]
  - PULMONARY HYPERTENSION [None]
